FAERS Safety Report 5738705-2 (Version None)
Quarter: 2008Q2

REPORT INFORMATION
  Report Type: 
  Country: None (occurrence: None)
  Receive Date: 20080515
  Receipt Date: 20080509
  Transmission Date: 20081010
  Serious: Yes (Other)
  Sender: FDA-Public Use
  Company Number: PHBS2008DK03626

PATIENT
  Age: 32 Year
  Sex: Female

DRUGS (5)
  1. RITALIN TAB [Suspect]
     Indication: ATTENTION DEFICIT/HYPERACTIVITY DISORDER
     Dosage: 20 MG, TID
     Route: 048
     Dates: start: 20071016
  2. DESOGESTREL AND ETHINYL ESTRADIOL [Suspect]
     Indication: CONTRACEPTION
     Dosage: 1 TABLET/DAY
     Route: 048
  3. SEROQUEL [Suspect]
     Indication: ANXIETY
     Dosage: 150 MG/DAY
     Route: 048
     Dates: end: 20071205
  4. SEROQUEL [Suspect]
     Dosage: 100 MG, QD
     Route: 048
     Dates: start: 20071205
  5. YASMIN [Concomitant]
     Route: 048

REACTIONS (10)
  - ABORTION SPONTANEOUS [None]
  - ALOPECIA [None]
  - DRUG EXPOSURE DURING PREGNANCY [None]
  - DRUG INTERACTION [None]
  - DRY MOUTH [None]
  - NAUSEA [None]
  - PREGNANCY ON ORAL CONTRACEPTIVE [None]
  - PREGNANCY TEST POSITIVE [None]
  - VISUAL DISTURBANCE [None]
  - WITHDRAWAL BLEED [None]
